FAERS Safety Report 8559407-3 (Version None)
Quarter: 2012Q3

REPORT INFORMATION
  Report Type: 
  Country: None (occurrence: None)
  Receive Date: 20120802
  Receipt Date: 20120725
  Transmission Date: 20120928
  Serious: Yes (Hospitalization, Other)
  Sender: FDA-Public Use
  Company Number: US-BAYER-201011749NA

PATIENT
  Age: 15 Year
  Sex: Female
  Weight: 79.819 kg

DRUGS (8)
  1. YASMIN [Suspect]
     Dosage: UNK
     Dates: start: 20070829, end: 20090813
  2. HYDROXYUREA [Concomitant]
  3. YAZ [Suspect]
     Indication: MENSTRUAL CYCLE MANAGEMENT
     Dosage: 1 DF, QD
     Dates: start: 20030101, end: 20090101
  4. TRAMADOL HYDROCHLORIDE [Concomitant]
     Dosage: 50 MG, UNK
     Route: 048
     Dates: start: 20080620, end: 20090813
  5. DROSPIRENONE AND ETHINYL ESTRADIOL [Suspect]
     Indication: MENSTRUAL CYCLE MANAGEMENT
     Dosage: 1 DF, QD
     Dates: start: 20070829, end: 20090813
  6. MOTRIN [Concomitant]
     Dosage: 800 MG, UNK
     Route: 048
     Dates: start: 20090727, end: 20090813
  7. FLEXERIL [Concomitant]
     Dosage: 10 MG, UNK
     Route: 048
     Dates: start: 20090727, end: 20090813
  8. DEPO-PROVERA [Concomitant]
     Dosage: UNK
     Dates: start: 20090916

REACTIONS (5)
  - JOINT SWELLING [None]
  - DESMOID TUMOUR [None]
  - DEEP VEIN THROMBOSIS [None]
  - PAIN [None]
  - LOWER EXTREMITY MASS [None]
